FAERS Safety Report 9669863 (Version 2)
Quarter: 2013Q4

REPORT INFORMATION
  Report Type: Report from Study
  Country: JP (occurrence: JP)
  Receive Date: 20131105
  Receipt Date: 20131113
  Transmission Date: 20140711
  Serious: Yes (Death)
  Sender: FDA-Public Use
  Company Number: JP-PFIZER INC-2013311667

PATIENT
  Age: 62 Year
  Sex: Female
  Weight: 50.5 kg

DRUGS (10)
  1. TEMSIROLIMUS [Suspect]
     Indication: RENAL CELL CARCINOMA
     Dosage: 25 MG, WEEKLY
     Dates: start: 20110728
  2. POLARAMINE [Concomitant]
     Indication: PROPHYLAXIS
     Dosage: 2 MG, WEEKLY
     Route: 048
  3. FENTOS [Concomitant]
     Indication: CANCER PAIN
     Dosage: 4 MG, 1X/DAY
     Route: 061
     Dates: start: 20110513
  4. MAGLAX [Concomitant]
     Indication: CONSTIPATION
     Dosage: 660 MG, 3X/DAY
     Route: 048
     Dates: start: 20101108
  5. LANSOPRAZOLE OD [Concomitant]
     Indication: PROPHYLAXIS
     Dosage: 30 MG, 1X/DAY
     Route: 048
     Dates: start: 20101029
  6. GASMOTIN [Concomitant]
     Indication: PROPHYLAXIS
     Dosage: 5 MG, 3X/DAY
     Route: 048
     Dates: start: 20100829
  7. LOXOPROFEN SODIUM [Concomitant]
     Indication: CANCER PAIN
     Dosage: 1 DF, 3X/DAY
     Route: 048
     Dates: start: 20101022
  8. REBAMIPIDE [Concomitant]
     Indication: PROPHYLAXIS
     Dosage: 1 DF, 3X/DAY
     Route: 048
     Dates: start: 20101020
  9. DEPAS [Concomitant]
     Indication: INSOMNIA
     Dosage: 0.5 MG, 1X/DAY
     Route: 048
     Dates: start: 20110415
  10. MERISLON [Concomitant]
     Indication: VERTIGO
     Dosage: 6 MG, 3X/DAY
     Route: 048
     Dates: start: 20110214

REACTIONS (2)
  - Disease progression [Fatal]
  - Renal cell carcinoma [Fatal]
